FAERS Safety Report 5955306-1 (Version None)
Quarter: 2008Q4

REPORT INFORMATION
  Report Type: 
  Country: None (occurrence: None)
  Receive Date: 20081031
  Receipt Date: 20080714
  Transmission Date: 20090506
  Serious: No
  Sender: FDA-Public Use
  Company Number: 2008PV036142

PATIENT
  Age: 62 Year
  Sex: Female

DRUGS (9)
  1. SYMLIN [Suspect]
     Indication: TYPE 1 DIABETES MELLITUS
     Dosage: SEE IMAGE, SC
     Route: 058
     Dates: start: 20080427, end: 20080401
  2. SYMLIN [Suspect]
     Indication: TYPE 1 DIABETES MELLITUS
     Dosage: SEE IMAGE, SC
     Route: 058
     Dates: start: 20080401, end: 20080501
  3. SYMLIN [Suspect]
     Indication: TYPE 1 DIABETES MELLITUS
     Dosage: SEE IMAGE, SC
     Route: 058
     Dates: start: 20080501, end: 20080501
  4. SYMLIN [Suspect]
     Indication: TYPE 1 DIABETES MELLITUS
     Dosage: SEE IMAGE, SC
     Route: 058
     Dates: start: 20080501, end: 20080501
  5. SYMLIN [Suspect]
     Indication: TYPE 1 DIABETES MELLITUS
     Dosage: SEE IMAGE, SC
     Route: 058
     Dates: start: 20080501, end: 20080501
  6. SYMLIN [Suspect]
     Indication: TYPE 1 DIABETES MELLITUS
     Dosage: SEE IMAGE, SC
     Route: 058
     Dates: start: 20080501, end: 20080501
  7. SYMLIN [Suspect]
     Indication: TYPE 1 DIABETES MELLITUS
     Dosage: SEE IMAGE, SC
     Route: 058
     Dates: start: 20080501
  8. LANTUS [Concomitant]
  9. HUMALOG [Concomitant]

REACTIONS (2)
  - DIZZINESS [None]
  - NAUSEA [None]
